FAERS Safety Report 5102505-7 (Version None)
Quarter: 2006Q3

REPORT INFORMATION
  Report Type: 
  Country: None (occurrence: None)
  Receive Date: 20060912
  Receipt Date: 20060818
  Transmission Date: 20061208
  Serious: Yes (Hospitalization)
  Sender: FDA-Public Use
  Company Number: BE-ROCHE-460210

PATIENT
  Age: 37 Year
  Sex: Female
  Weight: 75 kg

DRUGS (10)
  1. PEG-INTERFERON ALFA 2A (RO 25-8310) [Suspect]
     Route: 058
     Dates: start: 20051017
  2. MANIPREX [Concomitant]
     Dates: start: 19980115
  3. TRAZOLAN [Concomitant]
     Dates: start: 19980115
  4. VIREAD [Concomitant]
     Dates: start: 20050222
  5. EPIVIR [Concomitant]
     Dates: start: 20050222
  6. NORVIR [Concomitant]
     Dates: start: 20050222
  7. TELVIRAN [Concomitant]
     Dates: start: 20050222
  8. EDRONAX [Concomitant]
     Dates: start: 19980115
  9. ALPRAZOLAM [Concomitant]
     Dates: start: 20040115
  10. UNSPECIFIED MEDICATION [Concomitant]
     Dosage: REPORTED AS LAMBIPOL.
     Dates: start: 20060615

REACTIONS (4)
  - DEHYDRATION [None]
  - DIARRHOEA [None]
  - HERPETIC STOMATITIS [None]
  - VOMITING [None]
